FAERS Safety Report 5423569-7 (Version None)
Quarter: 2007Q3

REPORT INFORMATION
  Report Type: 
  Country: None (occurrence: None)
  Receive Date: 20070821
  Receipt Date: 20070821
  Transmission Date: 20080115
  Serious: No
  Sender: FDA-Public Use
  Company Number: None

PATIENT
  Sex: Female
  Weight: 82.1011 kg

DRUGS (4)
  1. ONDANSETRON [Suspect]
     Indication: IMPAIRED GASTRIC EMPTYING
     Dosage: 4MG BID ORAL
     Route: 048
     Dates: start: 20070102
  2. ONDANSETRON [Suspect]
     Indication: NAUSEA
     Dosage: 4MG BID ORAL
     Route: 048
     Dates: start: 20070102
  3. ONDANSETRON [Suspect]
     Indication: IMPAIRED GASTRIC EMPTYING
     Dosage: 4MG BID ORAL
     Route: 048
     Dates: start: 20070817
  4. ONDANSETRON [Suspect]
     Indication: NAUSEA
     Dosage: 4MG BID ORAL
     Route: 048
     Dates: start: 20070817

REACTIONS (2)
  - DRUG INEFFECTIVE [None]
  - PHARMACEUTICAL PRODUCT COMPLAINT [None]
